FAERS Safety Report 21700170 (Version 2)
Quarter: 2022Q4

REPORT INFORMATION
  Report Type: Spontaneous
  Country: US (occurrence: US)
  Receive Date: 20221208
  Receipt Date: 20221219
  Transmission Date: 20230113
  Serious: Yes (Other)
  Sender: FDA-Public Use
  Company Number: US-TEVA-2022-US-2832651

PATIENT
  Age: 8 Decade
  Sex: Female

DRUGS (8)
  1. HYDROCORTISONE [Suspect]
     Active Substance: HYDROCORTISONE
     Indication: Rash
     Route: 065
  2. TRIAMCINOLONE [Suspect]
     Active Substance: TRIAMCINOLONE
     Indication: Rash
     Route: 065
  3. PFIZER-BIONTECH COVID-19 VACCINE [Interacting]
     Active Substance: TOZINAMERAN
     Indication: COVID-19 immunisation
     Dosage: FIRST DOSE IN FEBRUARY 2021
     Route: 065
     Dates: start: 202102
  4. PFIZER-BIONTECH COVID-19 VACCINE [Interacting]
     Active Substance: TOZINAMERAN
     Dosage: SECOND DOSE IN MARCH 2021
     Route: 065
     Dates: start: 202103
  5. PFIZER-BIONTECH COVID-19 VACCINE [Interacting]
     Active Substance: TOZINAMERAN
     Dosage: BOOSTER DOSE 6 MONTHS LATER
     Route: 065
     Dates: start: 2021
  6. PEMBROLIZUMAB [Interacting]
     Active Substance: PEMBROLIZUMAB
     Indication: Non-small cell lung cancer
     Dosage: EVERY 21 DAYS
     Route: 050
     Dates: start: 2020
  7. DURVALUMAB [Suspect]
     Active Substance: DURVALUMAB
     Indication: Non-small cell lung cancer
     Route: 065
     Dates: start: 2018
  8. PEMETREXED [Concomitant]
     Active Substance: PEMETREXED
     Indication: Non-small cell lung cancer
     Dosage: EVERY 21 DAYS
     Route: 050
     Dates: start: 2020

REACTIONS (3)
  - Rash [Recovered/Resolved]
  - Drug interaction [Unknown]
  - Drug ineffective [Unknown]
